FAERS Safety Report 8997108 (Version 1)
Quarter: 2013Q1

REPORT INFORMATION
  Report Type: Spontaneous
  Country: US (occurrence: None)
  Receive Date: 20130102
  Receipt Date: 20130102
  Transmission Date: 20140127
  Serious: No
  Sender: FDA-Public Use
  Company Number: None

PATIENT
  Age: 34 Year
  Sex: Female

DRUGS (1)
  1. ENBREL 50MG PFS AMGEN [Suspect]
     Indication: PSORIASIS
     Dosage: 50MG TWICE WEEKLY SUB-Q
     Route: 058
     Dates: start: 20121130, end: 20121221

REACTIONS (3)
  - Sinusitis [None]
  - Pharyngitis [None]
  - Pancreatitis [None]
